FAERS Safety Report 4962847-2 (Version None)
Quarter: 2006Q2

REPORT INFORMATION
  Report Type: 
  Country: None (occurrence: None)
  Receive Date: 20060405
  Receipt Date: 20060322
  Transmission Date: 20061013
  Serious: Yes (Hospitalization)
  Sender: FDA-Public Use
  Company Number: DE-KINGPHARMUSA00001-K200600371

PATIENT
  Age: 17 Year
  Sex: Female
  Weight: 56 kg

DRUGS (4)
  1. LEVOXYL [Suspect]
     Indication: CONGENITAL HYPOTHYROIDISM
     Dosage: 200 MCG, QD
     Route: 048
  2. LEVOXYL [Suspect]
     Dosage: 800 MCG, QD
  3. LEVOXYL [Suspect]
     Dosage: 20 MG, SINGLE
  4. ALCOHOL [Concomitant]
     Dosage: 1 BOTTLE OF WINE
     Route: 048

REACTIONS (11)
  - HYPERHIDROSIS [None]
  - HYPERREFLEXIA [None]
  - HYPERTENSION [None]
  - INTENTIONAL OVERDOSE [None]
  - PALLOR [None]
  - SUICIDE ATTEMPT [None]
  - TACHYCARDIA [None]
  - TEARFULNESS [None]
  - THYROXINE INCREASED [None]
  - TREMOR [None]
  - TRI-IODOTHYRONINE INCREASED [None]
